FAERS Safety Report 5239038-3 (Version None)
Quarter: 2007Q1

REPORT INFORMATION
  Report Type: 
  Country: None (occurrence: None)
  Receive Date: 20061208
  Receipt Date: 20050701
  Transmission Date: 20070707
  Serious: Yes (Other)
  Sender: FDA-Public Use
  Company Number: 2005UW09934

PATIENT
  Age: 72 Year
  Sex: Female
  Weight: 47.627 kg

DRUGS (4)
  1. CRESTOR [Suspect]
     Indication: BLOOD CHOLESTEROL INCREASED
     Dosage: 10 MG PO
     Route: 048
  2. QVAR 40 [Concomitant]
  3. NASACORT [Concomitant]
  4. BENEFIBER [Concomitant]

REACTIONS (3)
  - ABDOMINAL PAIN UPPER [None]
  - INCREASED APPETITE [None]
  - PAIN IN EXTREMITY [None]
